FAERS Safety Report 11147646 (Version 1)
Quarter: 2015Q2

REPORT INFORMATION
  Report Type: Spontaneous
  Country: US (occurrence: None)
  Receive Date: 20150527
  Receipt Date: 20150527
  Transmission Date: 20150821
  Serious: Yes (Other)
  Sender: FDA-Public Use
  Company Number: 2015SA043077

PATIENT
  Sex: Male
  Weight: 85 kg

DRUGS (9)
  1. AMLODIPINE [Concomitant]
     Active Substance: AMLODIPINE BESYLATE
  2. TETANUS TOXOID [Concomitant]
     Active Substance: CLOSTRIDIUM TETANI TOXOID ANTIGEN (FORMALDEHYDE INACTIVATED)
  3. THYMOGLOBULIN [Suspect]
     Active Substance: LAPINE T-LYMPHOCYTE IMMUNE GLOBULIN
     Indication: IMMUNOSUPPRESSION
     Route: 041
     Dates: start: 20150317, end: 20150317
  4. ACETYLSALICYLIC ACID [Concomitant]
     Active Substance: ASPIRIN
  5. CINACALCET HYDROCHLORIDE [Concomitant]
     Active Substance: CINACALCET HYDROCHLORIDE
  6. MENTHOL. [Concomitant]
     Active Substance: MENTHOL
  7. ATORVASTATIN [Concomitant]
     Active Substance: ATORVASTATIN
  8. OXYCODONE [Concomitant]
     Active Substance: OXYCODONE
  9. SEVELAMER [Concomitant]
     Active Substance: SEVELAMER

REACTIONS (3)
  - Acute myocardial infarction [None]
  - Anaphylactic reaction [None]
  - Electrocardiogram ST segment depression [None]

NARRATIVE: CASE EVENT DATE: 20150317
